FAERS Safety Report 15203190 (Version 1)
Quarter: 2018Q4

REPORT INFORMATION
  Report Type: Spontaneous
  Country: EE (occurrence: EE)
  Receive Date: 20180726
  Receipt Date: 20180726
  Transmission Date: 20190204
  Serious: Yes (Other)
  Sender: FDA-Public Use
  Company Number: EE-DSJP-DSE-2018-134254

PATIENT

DRUGS (1)
  1. SANORAL (AMLODIPINE BESYLATE\OLMESARTAN MEDOXOMIL) [Suspect]
     Active Substance: AMLODIPINE BESYLATE\OLMESARTAN MEDOXOMIL
     Indication: HYPERTENSION
     Dosage: 40/5 MG, QD
     Route: 048
     Dates: start: 20150901, end: 20180601

REACTIONS (5)
  - Renal oncocytoma [Recovered/Resolved]
  - Fatigue [Recovered/Resolved]
  - Renal cyst [Recovered/Resolved]
  - Disability [Recovered/Resolved]
  - Flank pain [Recovered/Resolved]

NARRATIVE: CASE EVENT DATE: 2017
